FAERS Safety Report 21942925 (Version 1)
Quarter: 2023Q1

REPORT INFORMATION
  Report Type: Spontaneous
  Country: US (occurrence: US)
  Receive Date: 20230202
  Receipt Date: 20230202
  Transmission Date: 20230418
  Serious: No
  Sender: FDA-Public Use
  Company Number: US-ALKERMES INC.-ALK-2023-000431

PATIENT
  Sex: Male
  Weight: 99.773 kg

DRUGS (1)
  1. VIVITROL [Suspect]
     Active Substance: NALTREXONE
     Indication: Illness
     Dosage: 380 MILLIGRAM, QMO
     Route: 030

REACTIONS (2)
  - Therapeutic response shortened [Unknown]
  - Alcoholism [Unknown]
